FAERS Safety Report 25323014 (Version 2)
Quarter: 2025Q2

REPORT INFORMATION
  Report Type: Spontaneous
  Country: US (occurrence: US)
  Receive Date: 20250516
  Receipt Date: 20250611
  Transmission Date: 20250716
  Serious: No
  Sender: HETERO
  Company Number: US-HETERO-HET2025US02284

PATIENT
  Sex: Male

DRUGS (1)
  1. DIMETHYL FUMARATE [Suspect]
     Active Substance: DIMETHYL FUMARATE
     Indication: Product used for unknown indication
     Route: 065
     Dates: start: 20250505

REACTIONS (2)
  - Miliaria [Unknown]
  - Malaise [Unknown]

NARRATIVE: CASE EVENT DATE: 20250505
